FAERS Safety Report 25787678 (Version 2)
Quarter: 2025Q4

REPORT INFORMATION
  Report Type: Spontaneous
  Country: BR (occurrence: BR)
  Receive Date: 20250910
  Receipt Date: 20251006
  Transmission Date: 20260117
  Serious: Yes (Life-Threatening, Hospitalization, Other)
  Sender: BAYER HEALTHCARE PHARMACEUTICALS INC.
  Company Number: BR-BAYER-2025A118515

PATIENT
  Sex: Female
  Weight: 75 kg

DRUGS (2)
  1. GADOBUTROL [Suspect]
     Active Substance: GADOBUTROL
     Indication: Magnetic resonance imaging
     Dosage: 7.5 ML,RIGHT UPPER LIMB
     Route: 042
     Dates: start: 20250813
  2. LOSARTAN [Concomitant]
     Active Substance: LOSARTAN

REACTIONS (8)
  - Pruritus [None]
  - Hyperaemia [None]
  - Tachycardia [None]
  - Urticaria [None]
  - Depressed level of consciousness [None]
  - Hypotension [None]
  - Skin reaction [None]
  - Localised oedema [None]

NARRATIVE: CASE EVENT DATE: 20250814
